FAERS Safety Report 15358578 (Version 1)
Quarter: 2018Q3

REPORT INFORMATION
  Report Type: Report from Study
  Country: JP (occurrence: JP)
  Receive Date: 20180906
  Receipt Date: 20180906
  Transmission Date: 20181010
  Serious: Yes (Hospitalization, Other)
  Sender: FDA-Public Use
  Company Number: PHHY2010JP80968

PATIENT
  Age: 83 Year
  Sex: Female

DRUGS (4)
  1. CO?DIOVAN [Concomitant]
     Active Substance: HYDROCHLOROTHIAZIDE\VALSARTAN
  2. LIPITOR [Concomitant]
     Active Substance: ATORVASTATIN CALCIUM
     Indication: DYSLIPIDAEMIA
     Dosage: 5 MG, UNK
     Route: 048
     Dates: start: 20030520, end: 20101123
  3. PLATIBIT [Concomitant]
     Indication: DYSLIPIDAEMIA
     Route: 048
  4. EXFORGE [Suspect]
     Active Substance: AMLODIPINE BESYLATE\VALSARTAN
     Indication: HYPERTENSION
     Dosage: 1 DF
     Route: 048
     Dates: start: 20101013, end: 20101123

REACTIONS (7)
  - Cardiac failure [Recovered/Resolved]
  - Oedema peripheral [Not Recovered/Not Resolved]
  - Atrioventricular block [Recovering/Resolving]
  - Blood pressure increased [Unknown]
  - Brain natriuretic peptide increased [Not Recovered/Not Resolved]
  - Blood pressure inadequately controlled [Unknown]
  - Blood potassium decreased [Unknown]

NARRATIVE: CASE EVENT DATE: 20101105
